FAERS Safety Report 7735341-3 (Version None)
Quarter: 2011Q3

REPORT INFORMATION
  Report Type: 
  Country: None (occurrence: None)
  Receive Date: 20110907
  Receipt Date: 20110829
  Transmission Date: 20111222
  Serious: Yes (Other)
  Sender: FDA-Public Use
  Company Number: US-US-EMD SERONO, INC.-7077979

PATIENT
  Sex: Female
  Weight: 60 kg

DRUGS (4)
  1. LISINOPRIL AND HYDROCHLOROTHIAZIDE [Concomitant]
     Indication: HYPERTENSION
     Dosage: 10/12.5 MILLIGRAM
  2. LEXAPRO [Concomitant]
     Indication: DEPRESSION
  3. REBIF [Suspect]
     Indication: MULTIPLE SCLEROSIS
     Route: 058
     Dates: start: 20090115, end: 20110531
  4. BACLOFEN [Concomitant]
     Indication: MUSCLE SPASMS

REACTIONS (2)
  - ELECTROENCEPHALOGRAM ABNORMAL [None]
  - POVERTY OF SPEECH [None]
